FAERS Safety Report 4801050-3 (Version None)
Quarter: 2005Q4

REPORT INFORMATION
  Report Type: 
  Country: None (occurrence: None)
  Receive Date: 20051012
  Receipt Date: 20050929
  Transmission Date: 20060501
  Serious: Yes (Hospitalization)
  Sender: FDA-Public Use
  Company Number: 2005137136

PATIENT
  Age: 48 Year
  Sex: Female

DRUGS (2)
  1. GENOTROPIN [Suspect]
     Indication: OFF LABEL USE
     Dosage: 5.3 MG
     Dates: start: 20050401
  2. TESTOSTERONE [Concomitant]

REACTIONS (2)
  - BACK PAIN [None]
  - CHOLELITHIASIS [None]
